FAERS Safety Report 9528619 (Version 1)
Quarter: 2013Q1

REPORT INFORMATION
  Report Type: Spontaneous
  Country: US (occurrence: None)
  Receive Date: 20130314
  Receipt Date: 20130314
  Transmission Date: 20140127
  Serious: No
  Sender: FDA-Public Use
  Company Number: 1211USA011940

PATIENT
  Sex: Female

DRUGS (8)
  1. VICTRELIS (BOCEPREVIR) CAPSULE, 200MG [Suspect]
     Route: 048
  2. RIBAVIRIN (RIBAVIRIN) TABLET, 200 MG [Suspect]
  3. PEGINTRON [Suspect]
     Dosage: REDIPEN
  4. CALCIUM [Concomitant]
  5. VITAMIN B COMPLEX [Concomitant]
  6. VITAMINS [Concomitant]
  7. OMEGA-3 (OMEGA-3 MARINE TRIGLYCERIDES) [Concomitant]
  8. VITAMIN D [Concomitant]

REACTIONS (3)
  - Cystitis [None]
  - Alopecia [None]
  - Fatigue [None]
